FAERS Safety Report 7920359-8 (Version None)
Quarter: 2011Q4

REPORT INFORMATION
  Report Type: 
  Country: None (occurrence: None)
  Receive Date: 20111117
  Receipt Date: 20111114
  Transmission Date: 20120403
  Serious: Yes (Hospitalization, Other)
  Sender: FDA-Public Use
  Company Number: US-BAYER-2011-097583

PATIENT
  Age: 76 Year
  Sex: Male
  Weight: 59.2 kg

DRUGS (3)
  1. BLINDED SORAFENIB (RAF KINASE INHIBITOR) [Suspect]
     Indication: HEPATIC NEOPLASM MALIGNANT
     Dosage: 200 MG, BID
     Route: 048
     Dates: start: 20110906, end: 20110918
  2. GANODERMA LUCIDUM [Concomitant]
     Indication: SUPPLEMENTATION THERAPY
     Dosage: UNK
     Route: 048
  3. TEMSIROLIMUS [Suspect]
     Indication: HEPATIC NEOPLASM MALIGNANT
     Dosage: 7.5 MG, OW
     Route: 042
     Dates: start: 20110822, end: 20110914

REACTIONS (1)
  - TOOTH ABSCESS [None]
